FAERS Safety Report 5335662-8 (Version None)
Quarter: 2007Q2

REPORT INFORMATION
  Report Type: 
  Country: None (occurrence: None)
  Receive Date: 20070322
  Receipt Date: 20061213
  Transmission Date: 20071010
  Serious: No
  Sender: FDA-Public Use
  Company Number: 2006US002918

PATIENT
  Sex: Female

DRUGS (1)
  1. VESLCARE (SOLIFENACIN) TABLET, 5MG [Suspect]
     Indication: DRUG USE FOR UNKNOWN INDICATION
     Dosage: 5 MG, ORAL
     Route: 048
     Dates: start: 20061212

REACTIONS (2)
  - ABDOMINAL PAIN [None]
  - DIARRHOEA [None]
